FAERS Safety Report 8858886 (Version 1)
Quarter: 2012Q4

REPORT INFORMATION
  Report Type: Spontaneous
  Country: US (occurrence: None)
  Receive Date: 20121019
  Receipt Date: 20121019
  Transmission Date: 20130627
  Serious: Yes (Hospitalization)
  Sender: FDA-Public Use
  Company Number: 2012-1050

PATIENT
  Age: 75 Year
  Sex: Female

DRUGS (4)
  1. KYPROLIS [Suspect]
     Indication: MULTIPLE MYELOMA
     Dosage: (2 in 2 wk), Intravenous
     Route: 042
     Dates: start: 20120827
  2. DEXAMETHASONE (DEXAMETHASONE) (DEXAMETHASONE) [Concomitant]
  3. METFORMIN (METFORMIN) (METFORMIN) [Concomitant]
  4. PAMIDRONATE (PAMIDRONATE DISODIUM) (PAMIDRONATE DISODIUM) [Concomitant]

REACTIONS (1)
  - Atrioventricular block complete [None]
